FAERS Safety Report 15289637 (Version 2)
Quarter: 2018Q3

REPORT INFORMATION
  Report Type: Spontaneous
  Country: US (occurrence: US)
  Receive Date: 20180817
  Receipt Date: 20180827
  Transmission Date: 20181010
  Serious: Yes (Hospitalization, Other)
  Sender: FDA-Public Use
  Company Number: US-ASTRAZENECA-2018SF03470

PATIENT
  Sex: Female
  Weight: 68 kg

DRUGS (4)
  1. ASPIRIN. [Concomitant]
     Active Substance: ASPIRIN
  2. NEXIUM [Suspect]
     Active Substance: ESOMEPRAZOLE MAGNESIUM
     Route: 048
  3. NEXIUM 24HR [Suspect]
     Active Substance: ESOMEPRAZOLE MAGNESIUM
     Indication: GASTROOESOPHAGEAL REFLUX DISEASE
     Dosage: NEXIUM OTC. UNKOWN, DAILY.
     Route: 048
  4. NEXIUM 24HR [Suspect]
     Active Substance: ESOMEPRAZOLE MAGNESIUM
     Indication: GASTROOESOPHAGEAL REFLUX DISEASE
     Dosage: GENERIC, 40 MG DAILY.
     Route: 065

REACTIONS (15)
  - Vomiting [Unknown]
  - Sinus disorder [Not Recovered/Not Resolved]
  - Nasal congestion [Unknown]
  - Hypophagia [Unknown]
  - Malaise [Recovered/Resolved]
  - Dyspnoea [Unknown]
  - Choking [Unknown]
  - Lactose intolerance [Unknown]
  - Productive cough [Unknown]
  - Drug dose omission [Unknown]
  - Abdominal discomfort [Unknown]
  - Hernia [Unknown]
  - Hyperchlorhydria [Unknown]
  - Memory impairment [Unknown]
  - Nausea [Recovered/Resolved]
